FAERS Safety Report 10226355 (Version 2)
Quarter: 2014Q2

REPORT INFORMATION
  Report Type: Report from Study
  Country: AT (occurrence: AT)
  Receive Date: 20140609
  Receipt Date: 20140609
  Transmission Date: 20141212
  Serious: Yes (Other)
  Sender: FDA-Public Use
  Company Number: PHHY2013AT095583

PATIENT
  Sex: Female

DRUGS (6)
  1. GLIVEC [Suspect]
     Indication: CHRONIC MYELOID LEUKAEMIA
     Dosage: 400 MG, DAILY
     Route: 048
  2. GLIVEC [Suspect]
     Dosage: 1600 MG, DAILY (FOR THREE DAYS)
     Route: 048
     Dates: start: 20060316
  3. GLIVEC [Suspect]
     Dosage: 400 MG, DAILY
     Route: 048
     Dates: start: 200603
  4. GLIVEC [Suspect]
     Dosage: DOSE { 400 MG
  5. THYREX [Concomitant]
     Dosage: UNK UKN, UNK
  6. OMNIFLORA [Concomitant]
     Dosage: UNK UKN, UNK

REACTIONS (9)
  - Gastrointestinal disorder [Recovered/Resolved]
  - Nausea [Recovered/Resolved]
  - Oedema peripheral [Unknown]
  - Diarrhoea [Not Recovered/Not Resolved]
  - Overdose [Recovered/Resolved]
  - Headache [Recovered/Resolved]
  - Eyelid oedema [Unknown]
  - Muscular weakness [Unknown]
  - Myalgia [Unknown]
